FAERS Safety Report 8719265 (Version 2)
Quarter: 2013Q1

REPORT INFORMATION
  Report Type: Spontaneous
  Country: US (occurrence: US)
  Receive Date: 20120813
  Receipt Date: 20130107
  Transmission Date: 20140127
  Serious: No
  Sender: FDA-Public Use
  Company Number: US-009507513-1208USA002993

PATIENT
  Sex: Female

DRUGS (2)
  1. JANUMET [Suspect]
     Dosage: 500/50 MG
     Route: 048
  2. JANUMET [Suspect]
     Dosage: 500/50 MG
     Route: 048

REACTIONS (3)
  - Drug dose omission [Unknown]
  - Product colour issue [Unknown]
  - No adverse event [Unknown]
